FAERS Safety Report 6842502-4 (Version None)
Quarter: 2010Q3

REPORT INFORMATION
  Report Type: 
  Country: None (occurrence: None)
  Receive Date: 20100714
  Receipt Date: 20071112
  Transmission Date: 20110219
  Serious: Yes (Other)
  Sender: FDA-Public Use
  Company Number: US-PFIZER INC-2007063542

PATIENT
  Sex: Male
  Weight: 72.6 kg

DRUGS (7)
  1. CHANTIX [Suspect]
     Indication: SMOKING CESSATION THERAPY
     Route: 048
     Dates: start: 20070708, end: 20070901
  2. MS CONTIN [Concomitant]
     Route: 048
  3. DILAUDID [Concomitant]
  4. NEXIUM [Concomitant]
     Route: 048
  5. PROMETHAZINE [Concomitant]
     Route: 048
  6. ALBUTEROL [Concomitant]
     Route: 055
  7. STOOL SOFTENER [Concomitant]
     Route: 048

REACTIONS (10)
  - COLD SWEAT [None]
  - CONSTIPATION [None]
  - DIARRHOEA [None]
  - HEADACHE [None]
  - INCREASED UPPER AIRWAY SECRETION [None]
  - INTENTIONAL DRUG MISUSE [None]
  - MALAISE [None]
  - NAUSEA [None]
  - PRODUCTIVE COUGH [None]
  - SPUTUM DISCOLOURED [None]
